FAERS Safety Report 4509065-X (Version None)
Quarter: 2004Q4

REPORT INFORMATION
  Report Type: 
  Country: None (occurrence: None)
  Receive Date: 20041025
  Receipt Date: 20030919
  Transmission Date: 20050328
  Serious: Yes (Hospitalization)
  Sender: FDA-Public Use
  Company Number: US-JNJFOC-20030904913

PATIENT
  Age: 53 Year
  Sex: Female
  Weight: 61.6892 kg

DRUGS (11)
  1. REMICADE [Suspect]
     Indication: RHEUMATOID ARTHRITIS
     Dosage: 200 MG, 1 IN 1 TOTAL, INTRAVENOUS
     Route: 042
  2. ELAVIL [Concomitant]
  3. PROZAC (FLOUXETINE HYDROCHLORIDE) [Concomitant]
  4. PROTONIX [Concomitant]
  5. BENTYL [Concomitant]
  6. XANAX [Concomitant]
  7. METAMUCIL (PSYLLUM HYDROPHILIC MUCILLOID) [Concomitant]
  8. VIOCASE (PANCRELIPASE) [Concomitant]
  9. URSO [Concomitant]
  10. CHOLESTID (HYMECROMONE) [Concomitant]
  11. LORTAB [Concomitant]

REACTIONS (1)
  - PANCREATITIS [None]
